FAERS Safety Report 21983705 (Version 1)
Quarter: 2023Q1

REPORT INFORMATION
  Report Type: Spontaneous
  Country: US (occurrence: US)
  Receive Date: 20230213
  Receipt Date: 20230213
  Transmission Date: 20230418
  Serious: No
  Sender: FDA-Public Use
  Company Number: US-AMGEN-USASP2023022033

PATIENT

DRUGS (2)
  1. CINACALCET HYDROCHLORIDE [Suspect]
     Active Substance: CINACALCET HYDROCHLORIDE
     Indication: Hyperparathyroidism
     Dosage: 30 MILLIGRAM, QD
     Route: 065
  2. UNSPECIFIED INGREDIENT [Concomitant]
     Active Substance: UNSPECIFIED INGREDIENT
     Indication: Supplementation therapy
     Dosage: UNK
     Route: 048

REACTIONS (4)
  - Blood phosphorus increased [Unknown]
  - Blood alkaline phosphatase increased [Recovered/Resolved]
  - Blood parathyroid hormone increased [Unknown]
  - Rebound effect [Unknown]
